FAERS Safety Report 8072820-6 (Version None)
Quarter: 2012Q1

REPORT INFORMATION
  Report Type: 
  Country: None (occurrence: None)
  Receive Date: 20120123
  Receipt Date: 20120123
  Transmission Date: 20120608
  Serious: No
  Sender: FDA-Public Use
  Company Number: None

PATIENT

DRUGS (2)
  1. BARIUM SULFATE- EZ-HD [Suspect]
  2. BARIUM SULFATE- EZ-HD 0.1% SOLUTION [Suspect]

REACTIONS (2)
  - PRODUCT COLOUR ISSUE [None]
  - PRODUCT QUALITY ISSUE [None]
